FAERS Safety Report 10380553 (Version 1)
Quarter: 2014Q3

REPORT INFORMATION
  Report Type: Spontaneous
  Country: JP (occurrence: JP)
  Receive Date: 20140813
  Receipt Date: 20140813
  Transmission Date: 20150326
  Serious: Yes (Death)
  Sender: FDA-Public Use
  Company Number: PHHY2013JP160726

PATIENT

DRUGS (1)
  1. ZOMETA [Suspect]
     Active Substance: ZOLEDRONIC ACID
     Indication: METASTASIS
     Dates: start: 20111101

REACTIONS (2)
  - Nausea [Unknown]
  - Death [Fatal]

NARRATIVE: CASE EVENT DATE: 20111101
